FAERS Safety Report 8240733-2 (Version None)
Quarter: 2012Q1

REPORT INFORMATION
  Report Type: 
  Country: None (occurrence: None)
  Receive Date: 20120328
  Receipt Date: 20120313
  Transmission Date: 20120608
  Serious: Yes (Hospitalization, Disabling)
  Sender: FDA-Public Use
  Company Number: NL-ROCHE-1018743

PATIENT
  Sex: Female

DRUGS (6)
  1. IBUPROFEN [Concomitant]
  2. ACETAMINOPHEN [Concomitant]
  3. NEUROFEN COLD + FLU [Concomitant]
     Dates: start: 20111101
  4. HERCEPTIN [Suspect]
     Indication: BREAST CANCER METASTATIC
     Dosage: LAST DOSE ADMINSTER ON 14 OCT 2011
     Route: 042
     Dates: start: 20110113
  5. AVASTIN [Suspect]
     Indication: BREAST CANCER METASTATIC
     Route: 042
     Dates: start: 20110113
  6. DURAGESIC-100 [Concomitant]

REACTIONS (4)
  - PAIN IN EXTREMITY [None]
  - SENSORY LOSS [None]
  - VOMITING [None]
  - NERVE COMPRESSION [None]
